FAERS Safety Report 10077539 (Version 1)
Quarter: 2014Q2

REPORT INFORMATION
  Report Type: Spontaneous
  Country: US (occurrence: US)
  Receive Date: 20140414
  Receipt Date: 20140414
  Transmission Date: 20141212
  Serious: No
  Sender: FDA-Public Use
  Company Number: US-009507513-1404GBR005743

PATIENT
  Age: 71 Year
  Sex: Female
  Weight: 62.59 kg

DRUGS (3)
  1. ZOCOR [Suspect]
     Indication: BLOOD CHOLESTEROL INCREASED
     Dosage: UNK
     Route: 048
  2. MEVACOR TABLET [Suspect]
     Indication: BLOOD CHOLESTEROL INCREASED
     Route: 048
  3. THYROID [Concomitant]
     Indication: BASEDOW^S DISEASE

REACTIONS (5)
  - Non-alcoholic steatohepatitis [Unknown]
  - Hepatic enzyme increased [Unknown]
  - Fatigue [Unknown]
  - Pain [Unknown]
  - Hepatic pain [Unknown]
